FAERS Safety Report 13424420 (Version 1)
Quarter: 2017Q2

REPORT INFORMATION
  Report Type: Spontaneous
  Country: IN (occurrence: IN)
  Receive Date: 20170410
  Receipt Date: 20170410
  Transmission Date: 20170830
  Serious: Yes (Death, Other)
  Sender: FDA-Public Use
  Company Number: IN-JNJFOC-20170402785

PATIENT

DRUGS (4)
  1. ADRIAMYCIN [Suspect]
     Active Substance: DOXORUBICIN HYDROCHLORIDE
     Indication: HODGKIN^S DISEASE
     Dosage: 6 CYCLES, GIVEN ON DAYS 1 AND 15 OF A FOUR WEEKLY CYCLE
     Route: 065
  2. BLEOMYCIN [Suspect]
     Active Substance: BLEOMYCIN SULFATE
     Indication: HODGKIN^S DISEASE
     Dosage: DOSAGE 10 UNITS/ M2, 6 CYCLES, GIVEN ON DAYS 1 AND 15 OF A FOUR WEEKLY CYCLE
     Route: 065
  3. VINBLASTINE [Suspect]
     Active Substance: VINBLASTINE
     Indication: HODGKIN^S DISEASE
     Dosage: 6 CYCLES, GIVEN ON DAYS 1 AND 15 OF A FOUR WEEKLY CYCLE
     Route: 065
  4. DACARBAZINE. [Suspect]
     Active Substance: DACARBAZINE
     Indication: HODGKIN^S DISEASE
     Dosage: 6 CYCLES, GIVEN ON DAYS 1 AND 15 OF A FOUR WEEKLY CYCLE
     Route: 065

REACTIONS (8)
  - Toxicity to various agents [Fatal]
  - Meningitis tuberculous [Unknown]
  - Pneumonia [Unknown]
  - Product use in unapproved indication [Unknown]
  - Febrile neutropenia [Unknown]
  - Off label use [Unknown]
  - Pneumocystis jirovecii pneumonia [Unknown]
  - Anaemia [Unknown]
